FAERS Safety Report 11558252 (Version 1)
Quarter: 2015Q3

REPORT INFORMATION
  Report Type: Spontaneous
  Country: US (occurrence: US)
  Receive Date: 20150928
  Receipt Date: 20150928
  Transmission Date: 20151125
  Serious: No
  Sender: FDA-Public Use
  Company Number: US-SUN PHARMACEUTICAL INDUSTRIES LTD-2015US-95894

PATIENT
  Age: 92 Year
  Sex: Female

DRUGS (1)
  1. LORATADINE. [Suspect]
     Active Substance: LORATADINE
     Indication: HYPERSENSITIVITY
     Dosage: 4 DF, DAILY
     Route: 065
     Dates: start: 20150314, end: 20150315

REACTIONS (2)
  - Cold sweat [Unknown]
  - Accidental overdose [Unknown]

NARRATIVE: CASE EVENT DATE: 20150314
